FAERS Safety Report 25012484 (Version 2)
Quarter: 2025Q1

REPORT INFORMATION
  Report Type: Spontaneous
  Country: HK (occurrence: HK)
  Receive Date: 20250226
  Receipt Date: 20250305
  Transmission Date: 20250408
  Serious: Yes (Other)
  Sender: REGENERON
  Company Number: HK-BAYER-2025A023862

PATIENT

DRUGS (2)
  1. EYLEA HD [Suspect]
     Active Substance: AFLIBERCEPT
     Indication: Retinal vein occlusion
     Route: 031
  2. EYLEA HD [Suspect]
     Active Substance: AFLIBERCEPT
     Route: 031

REACTIONS (6)
  - Blindness [Recovering/Resolving]
  - Eye inflammation [Recovering/Resolving]
  - Vitreal cells [Recovered/Resolved]
  - Vitreal cells [Recovering/Resolving]
  - Product prescribing issue [Unknown]
  - Product use in unapproved indication [Unknown]
